FAERS Safety Report 19850619 (Version 1)
Quarter: 2021Q3

REPORT INFORMATION
  Report Type: Spontaneous
  Country: JP (occurrence: JP)
  Receive Date: 20210917
  Receipt Date: 20210917
  Transmission Date: 20211014
  Serious: Yes (Other)
  Sender: FDA-Public Use
  Company Number: NVSJ2021JP013491

PATIENT
  Age: 45 Year
  Sex: Female

DRUGS (4)
  1. DABRAFENIB [Suspect]
     Active Substance: DABRAFENIB
     Indication: MALIGNANT MELANOMA STAGE III
     Dosage: UNK
     Route: 048
  2. ENCORAFENIB [Suspect]
     Active Substance: ENCORAFENIB
     Indication: MALIGNANT MELANOMA STAGE III
     Dosage: UNK
     Route: 065
  3. BINIMETINIB [Suspect]
     Active Substance: BINIMETINIB
     Indication: MALIGNANT MELANOMA STAGE III
     Dosage: UNK
     Route: 065
  4. TRAMETINIB [Suspect]
     Active Substance: TRAMETINIB
     Indication: MALIGNANT MELANOMA STAGE III
     Dosage: UNK
     Route: 048

REACTIONS (4)
  - Pyrexia [Unknown]
  - Second primary malignancy [Unknown]
  - Ovarian cancer [Unknown]
  - Endometrial cancer [Unknown]
